FAERS Safety Report 8763749 (Version 2)
Quarter: 2012Q4

REPORT INFORMATION
  Report Type: 
  Country: US (occurrence: US)
  Receive Date: 20120831
  Receipt Date: 20120831
  Transmission Date: 20130627
  Serious: Yes (Disabling)
  Sender: FDA-Public Use
  Company Number: PHEH2012US013131

PATIENT
  Sex: Female
  Weight: 150 kg

DRUGS (4)
  1. DIOVAN [Suspect]
     Indication: HYPERTENSION
     Dosage: 320 mg, daily
     Route: 048
     Dates: start: 201007, end: 201207
  2. METFORMIN [Concomitant]
     Indication: DIABETES MELLITUS
     Dosage: 1 DF, BID
     Route: 048
     Dates: start: 2010
  3. SYNTHROID [Concomitant]
     Indication: HYPOTHYROIDISM
     Dosage: 1 DF, daily
     Route: 048
     Dates: start: 2004
  4. CYMBALTA [Concomitant]
     Indication: DEPRESSION
     Dosage: 1 DF, daily
     Route: 048
     Dates: start: 2005, end: 201207

REACTIONS (3)
  - Skin discolouration [Recovering/Resolving]
  - Itching scar [Recovering/Resolving]
  - Drug ineffective [None]
